FAERS Safety Report 5391626-X (Version None)
Quarter: 2007Q3

REPORT INFORMATION
  Report Type: 
  Country: None (occurrence: None)
  Receive Date: 20070717
  Receipt Date: 20070628
  Transmission Date: 20080115
  Serious: Yes (Other)
  Sender: FDA-Public Use
  Company Number: TKT01200700283

PATIENT
  Age: 34 Year
  Sex: Male
  Weight: 60 kg

DRUGS (2)
  1. IDURSULFASE (IDURSULFASE) (0.5 MILLIGRAM(S)/KILOGRAM, CONCENTRATE FOR [Suspect]
     Indication: MUCOPOLYSACCHARIDOSIS II
     Dosage: (0.5 MG/KG, 1 IN 1 WK), INTRAVENOUS DRIP
     Route: 041
     Dates: start: 20070402
  2. CAPOTEN [Concomitant]

REACTIONS (2)
  - PRURITUS GENERALISED [None]
  - RASH ERYTHEMATOUS [None]
